FAERS Safety Report 7454579-6 (Version None)
Quarter: 2011Q2

REPORT INFORMATION
  Report Type: 
  Country: None (occurrence: None)
  Receive Date: 20110503
  Receipt Date: 20110401
  Transmission Date: 20111010
  Serious: Yes (Hospitalization, Other)
  Sender: FDA-Public Use
  Company Number: US-BAYER-200938671NA

PATIENT
  Age: 43 Year
  Sex: Female
  Weight: 65.76 kg

DRUGS (6)
  1. SULFASALAZINE [Concomitant]
     Indication: COLITIS
     Dosage: 500 MG, QD
     Dates: start: 19870101
  2. FOLIC ACID [Concomitant]
     Indication: COLITIS
     Dosage: 1 MG, QD
     Route: 048
     Dates: start: 19870101
  3. CYCLOBENZAPRINE [Concomitant]
     Dosage: 10 MG, HS
     Route: 048
     Dates: start: 20050912
  4. YASMIN [Suspect]
     Indication: MENSTRUATION IRREGULAR
     Dosage: UNK
     Dates: start: 20060101, end: 20071031
  5. IBUPROFEN [Concomitant]
     Dosage: 800 MG, TID
     Route: 048
     Dates: start: 20050912, end: 20070912
  6. HYDROQUINONE [Concomitant]
     Dosage: UNK UNK, BID
     Route: 061
     Dates: end: 20050324

REACTIONS (4)
  - PAIN [None]
  - EMOTIONAL DISTRESS [None]
  - PULMONARY EMBOLISM [None]
  - MYOCARDIAL INFARCTION [None]
